FAERS Safety Report 5676393-4 (Version None)
Quarter: 2008Q1

REPORT INFORMATION
  Report Type: 
  Country: None (occurrence: None)
  Receive Date: 20080321
  Receipt Date: 20080306
  Transmission Date: 20080703
  Serious: Yes (Life-Threatening, Other)
  Sender: FDA-Public Use
  Company Number: US-AMGEN-KDL270403

PATIENT
  Age: 72 Year
  Sex: Male

DRUGS (1)
  1. PROCRIT [Suspect]
     Indication: PREOPERATIVE CARE
     Route: 058
     Dates: start: 20040101, end: 20040101

REACTIONS (1)
  - DEEP VEIN THROMBOSIS [None]
